FAERS Safety Report 8540022-2 (Version None)
Quarter: 2012Q3

REPORT INFORMATION
  Report Type: 
  Country: None (occurrence: None)
  Receive Date: 20120726
  Receipt Date: 20120717
  Transmission Date: 20120928
  Serious: Yes (Hospitalization, Other)
  Sender: FDA-Public Use
  Company Number: US-ASTRAZENECA-2012SE50250

PATIENT
  Age: 70 Year
  Sex: Female
  Weight: 81.6 kg

DRUGS (8)
  1. PRILOSEC [Suspect]
     Indication: GASTROOESOPHAGEAL REFLUX DISEASE
     Route: 048
  2. NEXIUM [Suspect]
     Indication: GASTROOESOPHAGEAL REFLUX DISEASE
     Route: 048
  3. XANAX [Concomitant]
     Indication: HYPERTENSION
  4. METOPROLOL SUCCINATE [Concomitant]
     Indication: HYPERTENSION
  5. AMLODIPINE BESYLATE [Concomitant]
     Indication: HYPERTENSION
  6. NEXIUM [Suspect]
     Indication: HIATUS HERNIA
     Route: 048
  7. PRILOSEC [Suspect]
     Indication: HIATUS HERNIA
     Route: 048
  8. LISINOPRIL [Concomitant]
     Indication: HYPERTENSION

REACTIONS (7)
  - POST PROCEDURAL HAEMORRHAGE [None]
  - DRUG DOSE OMISSION [None]
  - CHOLELITHIASIS [None]
  - DRUG INEFFECTIVE [None]
  - SUTURE RUPTURE [None]
  - NAUSEA [None]
  - PNEUMONIA [None]
